FAERS Safety Report 18193057 (Version 1)
Quarter: 2020Q3

REPORT INFORMATION
  Report Type: Report from Study
  Country: NL (occurrence: NL)
  Receive Date: 20200825
  Receipt Date: 20200825
  Transmission Date: 20201103
  Serious: Yes (Other)
  Sender: FDA-Public Use
  Company Number: NL-AMGEN-NLDSL2020118821

PATIENT
  Age: 71 Year
  Sex: Female

DRUGS (12)
  1. CLOBETASOL [Concomitant]
     Active Substance: CLOBETASOL
     Dosage: 0.5 MILLIGRAM PER GRAM
  2. XGEVA [Suspect]
     Active Substance: DENOSUMAB
     Indication: PROPHYLAXIS
     Dosage: 120 MILLIGRAM, Q4WK
     Route: 058
  3. CALCIUM CARBONATE;COLECALCIFEROL [Concomitant]
     Active Substance: CALCIUM CARBONATE\CHOLECALCIFEROL
     Dosage: ,25G/440IE (500MG CA), QD
  4. AFATINIB [Concomitant]
     Active Substance: AFATINIB
     Dosage: 30 MILLIGRAM, QD
  5. OXYCODON [Concomitant]
     Active Substance: OXYCODONE
     Dosage: 5 MILLIGRAM, 2XD 1T
  6. VERAPAMIL [Concomitant]
     Active Substance: VERAPAMIL HYDROCHLORIDE
     Dosage: 120 MILLIGRAM, QD
  7. CETOMACROGOL [Concomitant]
     Active Substance: COSMETICS
     Dosage: UNK UNK, AS NECESSARY
  8. MINOCYCLINE [Concomitant]
     Active Substance: MINOCYCLINE HYDROCHLORIDE
     Dosage: 500 MILLIGRAM, QD
  9. OMEPRAZOL [OMEPRAZOLE] [Concomitant]
     Active Substance: OMEPRAZOLE
     Dosage: 20 MILLIGRAM, QD
  10. FLECAINIDE [Concomitant]
     Active Substance: FLECAINIDE
     Dosage: 50 MILLIGRAM, 2D1T
  11. HYDROXOCOBALAMINE [Concomitant]
     Active Substance: HYDROXOCOBALAMIN
     Dosage: 500UG/ML AMP 2ML, Q3WK
  12. OXAZEPAM. [Concomitant]
     Active Substance: OXAZEPAM
     Dosage: 10 MILLIGRAM, QD

REACTIONS (1)
  - Metastases to adrenals [Not Recovered/Not Resolved]

NARRATIVE: CASE EVENT DATE: 20200717
